FAERS Safety Report 11826646 (Version 1)
Quarter: 2015Q4

REPORT INFORMATION
  Report Type: Spontaneous
  Country: CA (occurrence: CA)
  Receive Date: 20151211
  Receipt Date: 20151211
  Transmission Date: 20160305
  Serious: Yes (Life-Threatening, Hospitalization, Other)
  Sender: FDA-Public Use
  Company Number: CA-TEVA-617222ACC

PATIENT
  Age: 52 Year
  Sex: Female

DRUGS (9)
  1. LAMOTRIGINE. [Suspect]
     Active Substance: LAMOTRIGINE
     Indication: TRIGEMINAL NEURALGIA
     Dosage: 100 MILLIGRAM DAILY;
     Route: 065
  2. RATIO-OXYCOCET [Concomitant]
     Active Substance: ACETAMINOPHEN\OXYCODONE HYDROCHLORIDE
  3. SALBUTAMOL [Concomitant]
     Active Substance: ALBUTEROL
  4. CARBAMAZEPINE. [Concomitant]
     Active Substance: CARBAMAZEPINE
  5. DOMPERIDONE [Concomitant]
     Active Substance: DOMPERIDONE
  6. SOFLAX [Concomitant]
     Active Substance: DOCUSATE
  7. VENLAFAXINE XR [Concomitant]
     Active Substance: VENLAFAXINE HYDROCHLORIDE
  8. HYDROCHLOROTHIAZIDE. [Concomitant]
     Active Substance: HYDROCHLOROTHIAZIDE
  9. OLMETEC [Concomitant]
     Active Substance: OLMESARTAN MEDOXOMIL

REACTIONS (5)
  - Hypersensitivity [Recovered/Resolved]
  - Oedema [Recovered/Resolved]
  - Loss of consciousness [Recovered/Resolved]
  - Blood lactic acid increased [Recovered/Resolved]
  - Swollen tongue [Recovered/Resolved]
